FAERS Safety Report 6088093-X (Version None)
Quarter: 2009Q1

REPORT INFORMATION
  Report Type: 
  Country: None (occurrence: None)
  Receive Date: 20090218
  Receipt Date: 20090129
  Transmission Date: 20090719
  Serious: Yes (Hospitalization)
  Sender: FDA-Public Use
  Company Number: 165058

PATIENT
  Age: 43 Year
  Sex: Male
  Weight: 57.6 kg

DRUGS (10)
  1. CARBOPLATIN [Suspect]
     Indication: NON-SMALL CELL LUNG CANCER
     Dosage: 730 MG, 1 EVERY 3 WEEKS, INTRAVENOUS
     Route: 042
     Dates: start: 20081128
  2. PACLITAXEL [Suspect]
     Indication: NON-SMALL CELL LUNG CANCER
     Dosage: 350 MG, 1 EVERY 3 WEEKS, INTRAVENOUS
     Route: 042
     Dates: start: 20081128
  3. (INVESTIGATIONAL DRUG) [Suspect]
     Indication: NON-SMALL CELL LUNG CANCER
     Dosage: 1300 MG, 1 EVERY 3 WEEKS, INTRAVENOUS
     Route: 042
     Dates: start: 20081128
  4. (CODEINE) [Concomitant]
  5. (DEXTROMETHORPHAN) [Concomitant]
  6. (MAGNESIUM OXIDE) [Concomitant]
  7. (AMBROXOL) [Concomitant]
  8. (SERRAPEPTASE) [Concomitant]
  9. (NICAMETATE) [Concomitant]
  10. TRAMADOL HCL [Concomitant]

REACTIONS (1)
  - DYSPNOEA [None]
